FAERS Safety Report 19515369 (Version 3)
Quarter: 2022Q2

REPORT INFORMATION
  Report Type: Report from Study
  Country: IN (occurrence: IN)
  Receive Date: 20210710
  Receipt Date: 20220609
  Transmission Date: 20220721
  Serious: Yes (Other)
  Sender: FDA-Public Use
  Company Number: IN-NOVARTISPH-NVSC2019IN076104

PATIENT
  Age: 78 Year
  Sex: Female

DRUGS (3)
  1. RIBOCICLIB [Suspect]
     Active Substance: RIBOCICLIB
     Indication: Breast cancer
     Dosage: 600 MG, QD FOR 21 DAYS AND THEN 1 WEEK OFF
     Route: 065
     Dates: start: 20190424, end: 201911
  2. RIBOCICLIB [Suspect]
     Active Substance: RIBOCICLIB
     Dosage: 400 MG, QD FOR 21 DAYS AND THEN 1 WEEK OFF
     Route: 065
     Dates: start: 20191118
  3. RIBOCICLIB [Suspect]
     Active Substance: RIBOCICLIB
     Dosage: 400 MG, QD
     Route: 065
     Dates: start: 201912, end: 202110

REACTIONS (11)
  - Drug intolerance [Not Recovered/Not Resolved]
  - Hypophagia [Not Recovered/Not Resolved]
  - Stomatitis [Not Recovered/Not Resolved]
  - Decreased appetite [Not Recovered/Not Resolved]
  - Chest pain [Recovering/Resolving]
  - Peripheral swelling [Not Recovered/Not Resolved]
  - Thrombocytopenia [Not Recovered/Not Resolved]
  - Constipation [Not Recovered/Not Resolved]
  - Syncope [Not Recovered/Not Resolved]
  - Nausea [Not Recovered/Not Resolved]
  - Pathological fracture [Unknown]

NARRATIVE: CASE EVENT DATE: 20191101
